FAERS Safety Report 13639681 (Version 1)
Quarter: 2017Q2

REPORT INFORMATION
  Report Type: Spontaneous
  Country: US (occurrence: US)
  Receive Date: 20170609
  Receipt Date: 20170609
  Transmission Date: 20170830
  Serious: Yes (Other)
  Sender: FDA-Public Use
  Company Number: US-ROCHE-1456609

PATIENT
  Sex: Female

DRUGS (3)
  1. KLONOPIN [Suspect]
     Active Substance: CLONAZEPAM
     Indication: GRIEF REACTION
     Route: 065
     Dates: end: 201204
  2. KLONOPIN [Suspect]
     Active Substance: CLONAZEPAM
     Indication: ANXIETY
     Route: 065
     Dates: start: 201402
  3. PREMPHASE [Concomitant]
     Active Substance: ESTROGENS, CONJUGATED\MEDROXYPROGESTERONE ACETATE

REACTIONS (14)
  - Dependence [Unknown]
  - Speech disorder [Not Recovered/Not Resolved]
  - Drug tolerance [Unknown]
  - Cerebral disorder [Unknown]
  - Memory impairment [Unknown]
  - Bedridden [Unknown]
  - Agoraphobia [Not Recovered/Not Resolved]
  - Drug withdrawal syndrome [Recovering/Resolving]
  - Dysarthria [Unknown]
  - Mania [Not Recovered/Not Resolved]
  - Malaise [Not Recovered/Not Resolved]
  - Motor dysfunction [Unknown]
  - Blunted affect [Not Recovered/Not Resolved]
  - Dementia [Not Recovered/Not Resolved]
